FAERS Safety Report 6819822-2 (Version None)
Quarter: 2010Q3

REPORT INFORMATION
  Report Type: 
  Country: None (occurrence: None)
  Receive Date: 20100707
  Receipt Date: 20100625
  Transmission Date: 20110219
  Serious: Yes (Death, Hospitalization)
  Sender: FDA-Public Use
  Company Number: PHHY2010DE24462

PATIENT
  Sex: Female
  Weight: 52 kg

DRUGS (6)
  1. ZOLEDRONATE T29581+ [Suspect]
     Dosage: 4 MG, AND EVERY 4 WEEKS
     Route: 017
     Dates: start: 20100205
  2. PANTOPRAZOLE [Concomitant]
     Dosage: UNK
     Route: 048
     Dates: start: 20100227, end: 20100327
  3. ZOPICLON [Concomitant]
     Dosage: UNK
     Route: 048
     Dates: start: 20100312, end: 20100316
  4. FLUOROURACIL [Concomitant]
     Dosage: 800 MG, UNK
     Dates: start: 20100205
  5. EPIRUBICIN [Concomitant]
     Dosage: 160 MG, UNK
     Dates: start: 20100205
  6. CYCLOPHOSPHAMIDE [Concomitant]
     Dosage: 800 MG, UNK
     Dates: start: 20100205

REACTIONS (16)
  - ASTHENIA [None]
  - COUGH [None]
  - DEPRESSION [None]
  - DIARRHOEA [None]
  - DYSPNOEA [None]
  - GENERAL PHYSICAL HEALTH DETERIORATION [None]
  - MALIGNANT NEOPLASM PROGRESSION [None]
  - MALIGNANT PLEURAL EFFUSION [None]
  - METASTASES TO BONE [None]
  - MUCOSAL INFLAMMATION [None]
  - PLEURODESIS [None]
  - PNEUMONIA [None]
  - PRODUCTIVE COUGH [None]
  - SPUTUM ABNORMAL [None]
  - STOMATITIS [None]
  - TREMOR [None]
